FAERS Safety Report 8403542-7 (Version None)
Quarter: 2012Q2

REPORT INFORMATION
  Report Type: 
  Country: None (occurrence: None)
  Receive Date: 20120601
  Receipt Date: 20120522
  Transmission Date: 20120825
  Serious: Yes (Hospitalization)
  Sender: FDA-Public Use
  Company Number: US-JNJFOC-20110800322

PATIENT
  Sex: Male
  Weight: 45.1 kg

DRUGS (22)
  1. HUMIRA [Concomitant]
     Dosage: STARTED
     Dates: start: 20090821
  2. ACETAMINOPHEN [Concomitant]
  3. IBUPROFEN [Concomitant]
  4. CALCIUM 600 AND VITAMIN D [Concomitant]
  5. METHOTREXATE [Concomitant]
     Dosage: 7.5-12.5 MG/WEEK
  6. REMICADE [Suspect]
     Route: 042
     Dates: start: 20090723, end: 20090723
  7. MULTIVITAMIN WITH MINERALS [Concomitant]
  8. PRILOSEC [Concomitant]
  9. REMICADE [Suspect]
     Indication: INFLAMMATORY BOWEL DISEASE
     Dosage: STARTED
     Route: 042
     Dates: start: 20090706
  10. HUMIRA [Concomitant]
     Indication: INFLAMMATORY BOWEL DISEASE
     Dates: start: 20091015
  11. BENZOYL PEROXIDE [Concomitant]
  12. FOLIC ACID [Concomitant]
  13. LETROZOLE [Concomitant]
  14. GROWTH HORMONE [Concomitant]
  15. ASCORBIC ACID [Concomitant]
  16. ADAPALENE [Concomitant]
  17. BENZACLIN [Concomitant]
  18. LEVOTHYROXINE SODIUM [Concomitant]
  19. ANTIBIOTICS [Concomitant]
     Indication: INFLAMMATORY BOWEL DISEASE
  20. CHOLECALCIFEROL [Concomitant]
  21. DAPSONE [Concomitant]
  22. PROBIOTICS [Concomitant]

REACTIONS (1)
  - SPASTIC DIPLEGIA [None]
